FAERS Safety Report 7282981-4 (Version None)
Quarter: 2011Q1

REPORT INFORMATION
  Report Type: 
  Country: None (occurrence: None)
  Receive Date: 20110209
  Receipt Date: 20110131
  Transmission Date: 20110831
  Serious: Yes (Other)
  Sender: FDA-Public Use
  Company Number: NL-JNJFOC-20110107824

PATIENT
  Sex: Male

DRUGS (4)
  1. RITALIN [Concomitant]
     Route: 065
  2. CONCERTA [Suspect]
     Indication: PRODUCT USED FOR UNKNOWN INDICATION
     Route: 048
  3. CONCERTA [Suspect]
     Route: 048
  4. RITALIN [Concomitant]
     Route: 065

REACTIONS (4)
  - SUICIDAL BEHAVIOUR [None]
  - OBSESSIVE-COMPULSIVE DISORDER [None]
  - SCHIZOPHRENIA [None]
  - AGGRESSION [None]
